FAERS Safety Report 13885664 (Version 2)
Quarter: 2017Q3

REPORT INFORMATION
  Report Type: Spontaneous
  Country: US (occurrence: US)
  Receive Date: 20170821
  Receipt Date: 20170915
  Transmission Date: 20171127
  Serious: Yes (Hospitalization, Other)
  Sender: FDA-Public Use
  Company Number: US-PRINSTON PHARMACEUTICAL INC.-2017PRN00392

PATIENT
  Age: 73 Year
  Sex: Female
  Weight: 58.96 kg

DRUGS (4)
  1. LOSARTAN POTASSIUM. [Suspect]
     Active Substance: LOSARTAN POTASSIUM
     Indication: HYPERTENSION
     Dosage: 50 MG, 1X/DAY
     Route: 048
     Dates: start: 20160804, end: 20161015
  2. LABETALOL [Suspect]
     Active Substance: LABETALOL\LABETALOL HYDROCHLORIDE
     Indication: HYPERTENSION
     Dosage: 100 MG, 1X/DAY
     Route: 048
     Dates: start: 2016
  3. LOSARTAN POTASSIUM. [Suspect]
     Active Substance: LOSARTAN POTASSIUM
     Indication: HYPERTENSION
     Dosage: 100 MG, 1X/DAY
     Route: 048
     Dates: start: 20161016
  4. XALATAN [Concomitant]
     Active Substance: LATANOPROST
     Dosage: 1 DROP IN EACH EYE, 1X/DAY AT BEDTIME

REACTIONS (11)
  - Postural orthostatic tachycardia syndrome [Unknown]
  - Rash [Unknown]
  - Thrombocytopenia [Unknown]
  - Arthropod bite [Unknown]
  - Tachycardia [Not Recovered/Not Resolved]
  - Mitral valve incompetence [Unknown]
  - Cough [Unknown]
  - Neutropenia [Unknown]
  - Bundle branch block left [Unknown]
  - Viral infection [Unknown]
  - Anxiety [Unknown]

NARRATIVE: CASE EVENT DATE: 201608
